FAERS Safety Report 18827703 (Version 1)
Quarter: 2021Q1

REPORT INFORMATION
  Report Type: Spontaneous
  Country: US (occurrence: US)
  Receive Date: 20210201
  Receipt Date: 20210201
  Transmission Date: 20210419
  Serious: Yes (Other)
  Sender: FDA-Public Use
  Company Number: US-ABBVIE-20K-163-3369713-00

PATIENT
  Sex: Female

DRUGS (2)
  1. HUMIRA [Suspect]
     Active Substance: ADALIMUMAB
     Indication: PRODUCT USED FOR UNKNOWN INDICATION
     Route: 058
  2. HUMIRA [Suspect]
     Active Substance: ADALIMUMAB
     Route: 058
     Dates: start: 2020

REACTIONS (7)
  - Musculoskeletal stiffness [Unknown]
  - Surgery [Recovered/Resolved]
  - Inflammation [Unknown]
  - Rheumatoid arthritis [Unknown]
  - Fear [Not Recovered/Not Resolved]
  - Musculoskeletal chest pain [Unknown]
  - Surgery [Recovering/Resolving]

NARRATIVE: CASE EVENT DATE: 2020
